FAERS Safety Report 7932437 (Version 4)
Quarter: 2016Q4

REPORT INFORMATION
  Report Type: Spontaneous
  Country: US (occurrence: US)
  Receive Date: 20110505
  Receipt Date: 20161018
  Transmission Date: 20170207
  Serious: Yes (Other)
  Sender: FDA-Public Use
  Company Number: US-ASTRAZENECA-2010SE30756

PATIENT
  Age: 72 Year
  Sex: Female
  Weight: 88 kg

DRUGS (11)
  1. CRESTOR [Suspect]
     Active Substance: ROSUVASTATIN CALCIUM
     Indication: BLOOD CHOLESTEROL INCREASED
     Route: 048
     Dates: start: 2006
  2. SULFAZINE [Concomitant]
     Active Substance: SULFASALAZINE
     Indication: COLITIS ULCERATIVE
     Dosage: 500 MG QID
     Route: 048
  3. FISH OIL [Concomitant]
     Active Substance: FISH OIL
     Indication: PROPHYLAXIS
     Route: 048
  4. VITAMIN D3 [Concomitant]
     Active Substance: CHOLECALCIFEROL
     Indication: PROPHYLAXIS
     Route: 048
  5. VITAMIN B12 [Concomitant]
     Active Substance: CYANOCOBALAMIN
     Indication: PROPHYLAXIS
     Route: 048
  6. LOVENOX [Concomitant]
     Active Substance: ENOXAPARIN SODIUM
     Indication: SURGERY
     Dosage: AS REQUIRED
     Route: 058
     Dates: start: 2012
  7. SEROSUL [Concomitant]
     Indication: BLOOD IRON DECREASED
     Route: 048
     Dates: start: 2012
  8. PLAVIX [Concomitant]
     Active Substance: CLOPIDOGREL BISULFATE
     Indication: ANTICOAGULANT THERAPY
     Route: 048
     Dates: start: 2006
  9. FOLIC ACID. [Concomitant]
     Active Substance: FOLIC ACID
     Indication: ABDOMINAL DISCOMFORT
     Route: 048
     Dates: start: 1963
  10. CALCIUM [Concomitant]
     Active Substance: CALCIUM
     Indication: PROPHYLAXIS
     Dosage: 600 MG TWO TIMES A DAY
     Route: 048
     Dates: start: 1955
  11. LISINOPRIL. [Suspect]
     Active Substance: LISINOPRIL
     Indication: HYPERTENSION
     Route: 048
     Dates: start: 2000

REACTIONS (18)
  - Immune system disorder [Unknown]
  - Susac^s syndrome [Unknown]
  - Face injury [Unknown]
  - Eye haemorrhage [Unknown]
  - Stress [Unknown]
  - Blindness unilateral [Unknown]
  - Blood cholesterol increased [Unknown]
  - Cataract [Unknown]
  - Dyspnoea [Unknown]
  - Retinal artery occlusion [Unknown]
  - Condition aggravated [Unknown]
  - Abdominal discomfort [Unknown]
  - Blood iron decreased [Unknown]
  - Cerebrovascular accident [Unknown]
  - Joint range of motion decreased [Unknown]
  - Haematemesis [Unknown]
  - Erythema [Unknown]
  - Visual acuity reduced [Unknown]

NARRATIVE: CASE EVENT DATE: 2006
